FAERS Safety Report 10644549 (Version 2)
Quarter: 2014Q4

REPORT INFORMATION
  Report Type: Spontaneous
  Country: US (occurrence: US)
  Receive Date: 20141210
  Receipt Date: 20141218
  Transmission Date: 20150529
  Serious: Yes (Death, Hospitalization, Other)
  Sender: FDA-Public Use
  Company Number: US-ABBVIE-14K-163-1318307-00

PATIENT
  Age: 78 Year
  Sex: Male
  Weight: 60.38 kg

DRUGS (3)
  1. HUMIRA [Suspect]
     Active Substance: ADALIMUMAB
     Route: 065
     Dates: start: 20141026, end: 20141204
  2. HUMIRA [Suspect]
     Active Substance: ADALIMUMAB
     Indication: CROHN^S DISEASE
     Route: 065
     Dates: start: 20141005, end: 20141005
  3. HUMIRA [Suspect]
     Active Substance: ADALIMUMAB
     Route: 065
     Dates: start: 20141019, end: 20141019

REACTIONS (11)
  - Malnutrition [Not Recovered/Not Resolved]
  - Hypophagia [Not Recovered/Not Resolved]
  - Fall [Recovered/Resolved]
  - Increased appetite [Unknown]
  - Upper limb fracture [Not Recovered/Not Resolved]
  - Musculoskeletal pain [Not Recovered/Not Resolved]
  - Weight decreased [Not Recovered/Not Resolved]
  - General physical health deterioration [Fatal]
  - Dementia [Not Recovered/Not Resolved]
  - Anhedonia [Not Recovered/Not Resolved]
  - Weight bearing difficulty [Not Recovered/Not Resolved]

NARRATIVE: CASE EVENT DATE: 2014
